FAERS Safety Report 10137751 (Version 1)
Quarter: 2014Q2

REPORT INFORMATION
  Report Type: Spontaneous
  Country: US (occurrence: US)
  Receive Date: 20140429
  Receipt Date: 20140429
  Transmission Date: 20141212
  Serious: Yes (Other)
  Sender: FDA-Public Use
  Company Number: US-BAYER-2014-060139

PATIENT
  Age: 31 Year
  Sex: Female
  Weight: 117.46 kg

DRUGS (7)
  1. YAZ [Suspect]
  2. YASMIN [Suspect]
  3. IBUPROFEN [Concomitant]
     Dosage: 800 MG, TID
  4. TYLENOL [PARACETAMOL] [Concomitant]
  5. EXCEDRIN [CAFFEINE,PARACETAMOL] [Concomitant]
  6. TORADOL [Concomitant]
  7. CHANTIX [Concomitant]

REACTIONS (2)
  - Pulmonary embolism [None]
  - Thrombophlebitis superficial [None]
